FAERS Safety Report 16377058 (Version 1)
Quarter: 2019Q3

REPORT INFORMATION
  Report Type: Spontaneous
  Country: US (occurrence: US)
  Receive Date: 20190527
  Receipt Date: 20190527
  Transmission Date: 20191004
  Serious: Yes (Other)
  Sender: FDA-Public Use
  Company Number: None

PATIENT
  Age: 24 Month

DRUGS (1)
  1. PEPTO KIDS [Suspect]
     Active Substance: CALCIUM CARBONATE
     Indication: HELICOBACTER INFECTION
     Route: 048

REACTIONS (1)
  - Product packaging issue [None]
